FAERS Safety Report 10078684 (Version 1)
Quarter: 2014Q2

REPORT INFORMATION
  Report Type: Spontaneous
  Country: US (occurrence: US)
  Receive Date: 20140415
  Receipt Date: 20140415
  Transmission Date: 20141212
  Serious: No
  Sender: FDA-Public Use
  Company Number: US-MYLANLABS-2014S1000802

PATIENT
  Sex: Female

DRUGS (3)
  1. VERAPAMIL HCL EXTENDED RELEASE TABLETS [Suspect]
     Indication: CLUSTER HEADACHE
  2. VERAPAMIL HCL EXTENDED RELEASE TABLETS [Suspect]
     Indication: CARDIAC DISORDER
  3. VERAPAMIL HCL EXTENDED RELEASE TABLETS [Suspect]
     Indication: OFF LABEL USE

REACTIONS (2)
  - Drug effect increased [Not Recovered/Not Resolved]
  - Unevaluable event [Not Recovered/Not Resolved]
